FAERS Safety Report 10210294 (Version 9)
Quarter: 2015Q1

REPORT INFORMATION
  Report Type: Spontaneous
  Country: US (occurrence: US)
  Receive Date: 20140602
  Receipt Date: 20150325
  Transmission Date: 20150720
  Serious: Yes (Life-Threatening, Hospitalization, Congenital Anomaly, Other)
  Sender: FDA-Public Use
  Company Number: US-ELI_LILLY_AND_COMPANY-US201405008605

PATIENT
  Age: 0 Day

DRUGS (4)
  1. PROZAC [Suspect]
     Active Substance: FLUOXETINE HYDROCHLORIDE
     Indication: PRODUCT USED FOR UNKNOWN INDICATION
     Dosage: UNK, UNKNOWN
     Route: 064
  2. REGLAN [Concomitant]
     Active Substance: METOCLOPRAMIDE HYDROCHLORIDE
     Route: 064
  3. PRENAT                             /07714001/ [Concomitant]
     Route: 064
  4. TERBUTALINE [Concomitant]
     Active Substance: TERBUTALINE
     Route: 064

REACTIONS (23)
  - Food allergy [Unknown]
  - Foetal exposure during pregnancy [Unknown]
  - Developmental delay [Unknown]
  - Gastrooesophageal reflux disease [Unknown]
  - Hyperbilirubinaemia [Unknown]
  - Cerebral palsy [Unknown]
  - Constipation [Unknown]
  - Feeding disorder neonatal [Recovered/Resolved]
  - Neonatal respiratory distress syndrome [Recovered/Resolved]
  - Weight gain poor [Unknown]
  - Traumatic haematoma [Unknown]
  - Oesophagitis [Unknown]
  - Abdominal discomfort [Unknown]
  - Premature baby [Unknown]
  - Allergic colitis [Unknown]
  - Speech disorder developmental [Unknown]
  - Exomphalos [Unknown]
  - Cerebrovascular accident [Unknown]
  - Fall [Unknown]
  - Mucous stools [Unknown]
  - Haematochezia [Unknown]
  - Milk allergy [Unknown]
  - Gastroenteritis [Unknown]

NARRATIVE: CASE EVENT DATE: 19980713
